FAERS Safety Report 16197688 (Version 1)
Quarter: 2019Q2

REPORT INFORMATION
  Report Type: Spontaneous
  Country: NL (occurrence: NL)
  Receive Date: 20190415
  Receipt Date: 20190415
  Transmission Date: 20190711
  Serious: Yes (Death)
  Sender: FDA-Public Use
  Company Number: NL-ROCHE-2301897

PATIENT
  Age: 70 Year
  Sex: Female

DRUGS (2)
  1. ESBRIET [Suspect]
     Active Substance: PIRFENIDONE
     Indication: OBLITERATIVE BRONCHIOLITIS
     Route: 048
  2. ESBRIET [Suspect]
     Active Substance: PIRFENIDONE
     Indication: CHRONIC GRAFT VERSUS HOST DISEASE

REACTIONS (5)
  - Dyspnoea [Unknown]
  - Death [Fatal]
  - Off label use [Unknown]
  - Intentional product use issue [Unknown]
  - Panic attack [Unknown]
